FAERS Safety Report 12357659 (Version 1)
Quarter: 2016Q2

REPORT INFORMATION
  Report Type: Spontaneous
  Country: US (occurrence: US)
  Receive Date: 20160512
  Receipt Date: 20160512
  Transmission Date: 20160815
  Serious: No
  Sender: FDA-Public Use
  Company Number: US-BIOGEN-2016BI00226268

PATIENT

DRUGS (1)
  1. TECFIDERA [Suspect]
     Active Substance: DIMETHYL FUMARATE
     Indication: MULTIPLE SCLEROSIS

REACTIONS (12)
  - Dizziness [Unknown]
  - Abdominal pain upper [Unknown]
  - Fatigue [Unknown]
  - Paraesthesia [Unknown]
  - Migraine [Unknown]
  - Central nervous system lesion [Unknown]
  - Nasopharyngitis [Unknown]
  - Oropharyngeal pain [Unknown]
  - Nausea [Unknown]
  - Initial insomnia [Unknown]
  - Diverticulitis [Unknown]
  - Flushing [Unknown]
